FAERS Safety Report 10366273 (Version 1)
Quarter: 2014Q3

REPORT INFORMATION
  Report Type: Spontaneous
  Country: US (occurrence: US)
  Receive Date: 20140806
  Receipt Date: 20140806
  Transmission Date: 20150326
  Serious: No
  Sender: FDA-Public Use
  Company Number: US-BAYER-2014-111633

PATIENT
  Age: 37 Year
  Sex: Female

DRUGS (2)
  1. FINACEA [Suspect]
     Active Substance: AZELAIC ACID
     Indication: DERMATITIS
     Dosage: 1-2 TIMES PER DAY TO FACE
     Route: 061
  2. FINACEA [Suspect]
     Active Substance: AZELAIC ACID
     Indication: DERMATITIS
     Dosage: 1-2 TIMES PER DAY TO FACE
     Route: 061
     Dates: start: 20140717

REACTIONS (2)
  - Burning sensation [None]
  - Product physical issue [None]
